FAERS Safety Report 13659102 (Version 1)
Quarter: 2017Q2

REPORT INFORMATION
  Report Type: Spontaneous
  Country: US (occurrence: US)
  Receive Date: 20170615
  Receipt Date: 20170615
  Transmission Date: 20170830
  Serious: Yes (Death)
  Sender: FDA-Public Use
  Company Number: None

PATIENT
  Age: 56 Year
  Sex: Male
  Weight: 118 kg

DRUGS (16)
  1. ALPRAZOLAM. [Concomitant]
     Active Substance: ALPRAZOLAM
  2. ALLOPURINOL. [Concomitant]
     Active Substance: ALLOPURINOL
  3. LITHIUM. [Concomitant]
     Active Substance: LITHIUM
  4. METFORMIN [Concomitant]
     Active Substance: METFORMIN HYDROCHLORIDE
  5. VIEKIRA PAK [Suspect]
     Active Substance: DASABUVIR\OMBITASVIR\PARITAPREVIR\RITONAVIR
     Indication: HEPATITIS C
     Dosage: 3 TABS AND/ 1 TAB PM DAILY BY MOUTH
     Route: 048
     Dates: start: 20161202, end: 20170221
  6. RIBAVIRIN 200MG [Suspect]
     Active Substance: RIBAVIRIN
     Indication: HEPATITIS C
     Dosage: 3 TABS TWICE DAILY BY MOUTH
     Route: 048
     Dates: start: 20161202, end: 20170221
  7. DURAGESIC [Suspect]
     Active Substance: FENTANYL
  8. LOSARTAN. [Concomitant]
     Active Substance: LOSARTAN
  9. OMEPRAZOLE. [Concomitant]
     Active Substance: OMEPRAZOLE
  10. SYMBICORT [Concomitant]
     Active Substance: BUDESONIDE\FORMOTEROL FUMARATE DIHYDRATE
  11. CYMBALTA [Concomitant]
     Active Substance: DULOXETINE HYDROCHLORIDE
  12. CHANTIX [Concomitant]
     Active Substance: VARENICLINE TARTRATE
  13. IBUPROFEN. [Concomitant]
     Active Substance: IBUPROFEN
  14. LEVOTHYROXINE. [Concomitant]
     Active Substance: LEVOTHYROXINE
  15. AMBIEN [Concomitant]
     Active Substance: ZOLPIDEM TARTRATE
  16. ALBUTEROL HFA [Concomitant]
     Active Substance: ALBUTEROL SULFATE

REACTIONS (1)
  - Death [None]

NARRATIVE: CASE EVENT DATE: 20170221
